FAERS Safety Report 22519829 (Version 1)
Quarter: 2023Q2

REPORT INFORMATION
  Report Type: Spontaneous
  Country: US (occurrence: US)
  Receive Date: 20230605
  Receipt Date: 20230605
  Transmission Date: 20230722
  Serious: No
  Sender: FDA-Public Use
  Company Number: US-SANOFI-01635675

PATIENT
  Sex: Female

DRUGS (2)
  1. LANTUS SOLOSTAR [Suspect]
     Active Substance: INSULIN GLARGINE
     Indication: Diabetes mellitus
     Dosage: 20 U, QD
     Dates: start: 202304, end: 202305
  2. LANTUS SOLOSTAR [Suspect]
     Active Substance: INSULIN GLARGINE
     Dosage: 24 U, QD
     Dates: start: 202305

REACTIONS (2)
  - Keratomileusis [Unknown]
  - Visual impairment [Unknown]

NARRATIVE: CASE EVENT DATE: 20230501
